FAERS Safety Report 11222470 (Version 2)
Quarter: 2015Q3

REPORT INFORMATION
  Report Type: Spontaneous
  Country: RO (occurrence: RO)
  Receive Date: 20150626
  Receipt Date: 20150706
  Transmission Date: 20151125
  Serious: Yes (Hospitalization)
  Sender: FDA-Public Use
  Company Number: RO-MERCK-1506ROM011388

PATIENT
  Age: 58 Year
  Sex: Female
  Weight: 78 kg

DRUGS (3)
  1. FILGRASTIM [Concomitant]
     Active Substance: FILGRASTIM
     Indication: NEUTROPENIA
     Dosage: 30000 IU, 3 DOSES/DAY
     Route: 058
     Dates: start: 20150511
  2. PEGINTRON [Suspect]
     Active Substance: PEGINTERFERON ALFA-2B
     Indication: CHRONIC HEPATITIS C
     Dosage: 80 MICROGRAM, WEEKLY, STRENGTH REPORTED AS: 80 MICROGRAM/WEEK
     Route: 058
     Dates: start: 20140718, end: 20150526
  3. REBETOL [Suspect]
     Active Substance: RIBAVIRIN
     Indication: CHRONIC HEPATITIS C
     Dosage: 1200 MG, DAILY, STRENGTH REPORTED AS: 1200 MG/DAY
     Route: 048
     Dates: start: 20140718, end: 20150526

REACTIONS (3)
  - Interstitial lung disease [Unknown]
  - Neutropenia [Unknown]
  - Erythema nodosum [Recovering/Resolving]

NARRATIVE: CASE EVENT DATE: 20150512
